FAERS Safety Report 10886422 (Version 3)
Quarter: 2015Q2

REPORT INFORMATION
  Report Type: Report from Study
  Country: US (occurrence: US)
  Receive Date: 20150304
  Receipt Date: 20150401
  Transmission Date: 20150821
  Serious: Yes (Death, Other)
  Sender: FDA-Public Use
  Company Number: US-ASTELLAS-2015US006395

PATIENT
  Age: 67 Year
  Sex: Male

DRUGS (1)
  1. ERLOTINIB [Suspect]
     Active Substance: ERLOTINIB
     Indication: LUNG NEOPLASM MALIGNANT
     Route: 048

REACTIONS (6)
  - Death [Fatal]
  - Diarrhoea [Unknown]
  - Chest discomfort [Unknown]
  - Vomiting [Unknown]
  - Nausea [Unknown]
  - Pleural effusion [Unknown]

NARRATIVE: CASE EVENT DATE: 20150322
